FAERS Safety Report 19385856 (Version 1)
Quarter: 2021Q2

REPORT INFORMATION
  Report Type: Spontaneous
  Country: US (occurrence: US)
  Receive Date: 20210608
  Receipt Date: 20210608
  Transmission Date: 20210717
  Serious: Yes (Life-Threatening, Hospitalization, Other)
  Sender: FDA-Public Use
  Company Number: US-LUPIN PHARMACEUTICALS INC.-2021-08856

PATIENT
  Age: 48 Year
  Sex: Female

DRUGS (4)
  1. LEVETIRACETAM. [Concomitant]
     Active Substance: LEVETIRACETAM
     Indication: EPILEPSY
     Dosage: UNK
     Route: 065
  2. CLOBAZAM. [Suspect]
     Active Substance: CLOBAZAM
     Indication: EPILEPSY
     Dosage: UNK (ONFI)
     Route: 065
  3. OXCARBAZEPINE. [Concomitant]
     Active Substance: OXCARBAZEPINE
     Indication: EPILEPSY
     Dosage: UNK
     Route: 065
  4. TOPIRAMATE. [Concomitant]
     Active Substance: TOPIRAMATE
     Indication: EPILEPSY
     Dosage: UNK
     Route: 065

REACTIONS (7)
  - Hypotension [Recovering/Resolving]
  - Ophthalmoplegia [Recovering/Resolving]
  - Respiratory rate decreased [Recovering/Resolving]
  - Toxicity to various agents [Unknown]
  - Encephalopathy [Recovering/Resolving]
  - Quadriparesis [Recovering/Resolving]
  - Clonus [Recovering/Resolving]
